FAERS Safety Report 24364311 (Version 1)
Quarter: 2024Q3

REPORT INFORMATION
  Report Type: Report from Study
  Country: US (occurrence: US)
  Receive Date: 20240925
  Receipt Date: 20240925
  Transmission Date: 20241017
  Serious: Yes (Other)
  Sender: ABBVIE
  Company Number: US-ABBVIE-5933768

PATIENT
  Sex: Male

DRUGS (1)
  1. IMBRUVICA [Suspect]
     Active Substance: IBRUTINIB
     Indication: Chronic lymphocytic leukaemia
     Route: 048
     Dates: start: 20140101

REACTIONS (5)
  - Nasal septum deviation [Unknown]
  - Immunodeficiency [Unknown]
  - Respiratory disorder [Recovering/Resolving]
  - Unevaluable event [Unknown]
  - Sinus disorder [Unknown]

NARRATIVE: CASE EVENT DATE: 20230101
